FAERS Safety Report 22764414 (Version 3)
Quarter: 2023Q4

REPORT INFORMATION
  Report Type: Spontaneous
  Country: US (occurrence: US)
  Receive Date: 20230731
  Receipt Date: 20231005
  Transmission Date: 20240109
  Serious: Yes (Hospitalization)
  Sender: FDA-Public Use
  Company Number: US-SANDOZ-SDZ2023US006640

PATIENT
  Sex: Male

DRUGS (2)
  1. ENTRESTO [Suspect]
     Active Substance: SACUBITRIL\VALSARTAN
     Indication: Product used for unknown indication
     Dosage: UNK,24/26MG, BID
     Route: 065
  2. LASIX [Suspect]
     Active Substance: FUROSEMIDE
     Indication: Product used for unknown indication
     Route: 065

REACTIONS (7)
  - Oedema [Unknown]
  - Throat clearing [Unknown]
  - Fluid intake restriction [Unknown]
  - Pain in extremity [Unknown]
  - Therapy change [Unknown]
  - Sodium retention [Unknown]
  - Protein total increased [Unknown]
